FAERS Safety Report 23073092 (Version 1)
Quarter: 2023Q4

REPORT INFORMATION
  Report Type: Spontaneous
  Country: US (occurrence: US)
  Receive Date: 20231017
  Receipt Date: 20231017
  Transmission Date: 20240109
  Serious: Yes (Other)
  Sender: FDA-Public Use
  Company Number: US-AUROBINDO-AUR-APL-2023-063378

PATIENT
  Age: 23 Year
  Sex: Female

DRUGS (18)
  1. AMPHOTERICIN B [Suspect]
     Active Substance: AMPHOTERICIN B
     Indication: Systemic candida
     Dosage: UNK
     Route: 065
  2. AMPHOTERICIN B [Suspect]
     Active Substance: AMPHOTERICIN B
     Indication: Systemic candida
  3. DAPTOMYCIN [Suspect]
     Active Substance: DAPTOMYCIN
     Indication: Enterococcal infection
     Dosage: UNK
     Route: 065
  4. DAPTOMYCIN [Suspect]
     Active Substance: DAPTOMYCIN
     Indication: Bacteraemia
  5. LEVOFLOXACIN [Suspect]
     Active Substance: LEVOFLOXACIN
     Indication: Infection prophylaxis
     Dosage: UNK
     Route: 065
  6. MEROPENEM [Suspect]
     Active Substance: MEROPENEM
     Indication: Enterococcal infection
     Dosage: UNK
     Route: 065
  7. MEROPENEM [Suspect]
     Active Substance: MEROPENEM
     Indication: Bacteraemia
  8. VALACYCLOVIR HYDROCHLORIDE [Suspect]
     Active Substance: VALACYCLOVIR HYDROCHLORIDE
     Indication: Infection prophylaxis
     Dosage: UNK
     Route: 065
  9. VORICONAZOLE [Suspect]
     Active Substance: VORICONAZOLE
     Indication: Systemic candida
     Dosage: UNK
     Route: 065
  10. IBRUTINIB [Suspect]
     Active Substance: IBRUTINIB
     Indication: B-cell type acute leukaemia
     Dosage: UNK
     Route: 065
  11. IBRUTINIB [Suspect]
     Active Substance: IBRUTINIB
     Indication: Metastases to meninges
  12. IBRUTINIB [Suspect]
     Active Substance: IBRUTINIB
     Indication: Infection prophylaxis
  13. VENETOCLAX [Suspect]
     Active Substance: VENETOCLAX
     Indication: B-cell type acute leukaemia
     Dosage: UNK
     Route: 065
  14. VENETOCLAX [Suspect]
     Active Substance: VENETOCLAX
     Indication: Metastases to meninges
  15. VENETOCLAX [Suspect]
     Active Substance: VENETOCLAX
     Indication: Infection prophylaxis
  16. ATOVAQUONE [Suspect]
     Active Substance: ATOVAQUONE
     Indication: Infection prophylaxis
     Dosage: UNK
     Route: 065
  17. MICAFUNGIN [Suspect]
     Active Substance: MICAFUNGIN SODIUM
     Indication: Infection prophylaxis
     Dosage: UNK HIGH-DOSE
     Route: 042
  18. MICAFUNGIN [Suspect]
     Active Substance: MICAFUNGIN SODIUM
     Indication: Systemic candida

REACTIONS (2)
  - Gastrointestinal candidiasis [Unknown]
  - Drug ineffective [Unknown]
